FAERS Safety Report 8078684-9 (Version None)
Quarter: 2012Q1

REPORT INFORMATION
  Report Type: 
  Country: None (occurrence: None)
  Receive Date: 20120124
  Receipt Date: 20120110
  Transmission Date: 20120608
  Serious: Yes (Other)
  Sender: FDA-Public Use
  Company Number: 2011MA016746

PATIENT
  Age: 48 Year
  Sex: Male

DRUGS (5)
  1. FLUOROURACIL [Suspect]
     Indication: GASTROINTESTINAL CARCINOMA
  2. OXALIPLATIN [Suspect]
     Indication: GASTROINTESTINAL CARCINOMA
  3. IRINOTECAN HYDROCHLORIDE [Suspect]
     Indication: GASTROINTESTINAL CARCINOMA
  4. AVASTIN [Suspect]
     Indication: GASTROINTESTINAL CARCINOMA
  5. CAPECITABINE [Suspect]
     Indication: GASTROINTESTINAL CARCINOMA

REACTIONS (4)
  - COLON CANCER METASTATIC [None]
  - NEOPLASM PROGRESSION [None]
  - CARCINOEMBRYONIC ANTIGEN INCREASED [None]
  - HAND FRACTURE [None]
